FAERS Safety Report 5907568-4 (Version None)
Quarter: 2008Q4

REPORT INFORMATION
  Report Type: 
  Country: None (occurrence: None)
  Receive Date: 20081002
  Receipt Date: 20081002
  Transmission Date: 20090506
  Serious: Yes (Other)
  Sender: FDA-Public Use
  Company Number: None

PATIENT
  Sex: Male
  Weight: 77.1115 kg

DRUGS (2)
  1. PREDNISONE TAB [Suspect]
     Indication: PULMONARY FIBROSIS
     Dosage: 1 10MG PILL ONCE A DAY PO
     Route: 048
     Dates: start: 20080829, end: 20080919
  2. PREDNISONE TAB [Suspect]
     Indication: PULMONARY FIBROSIS
     Dosage: 10 MG PILL ONCE A DAY  PO
     Route: 048
     Dates: start: 20080920, end: 20080927

REACTIONS (7)
  - ASTHENIA [None]
  - DRUG EFFECT DECREASED [None]
  - DRUG WITHDRAWAL SYNDROME [None]
  - HEADACHE [None]
  - HYPERSOMNIA [None]
  - PAIN IN EXTREMITY [None]
  - PRODUCT QUALITY ISSUE [None]
